FAERS Safety Report 12319095 (Version 19)
Quarter: 2019Q1

REPORT INFORMATION
  Report Type: Report from Study
  Country: CA (occurrence: CA)
  Receive Date: 20160429
  Receipt Date: 20190321
  Transmission Date: 20190417
  Serious: Yes (Other)
  Sender: FDA-Public Use
  Company Number: CA-INCYTE CORPORATION-2016IN002464

PATIENT

DRUGS (11)
  1. BABY ASPIRIN [Concomitant]
     Active Substance: ASPIRIN
     Dosage: 81 MG, QD
     Route: 065
  2. JAKAVI [Suspect]
     Active Substance: RUXOLITINIB
     Dosage: 35 MG, (20 MG IN THE MORNING AND 15 MG AT NIGHT)
     Route: 048
  3. JAKAVI [Suspect]
     Active Substance: RUXOLITINIB
     Dosage: 20 MG, BID
     Route: 048
  4. JAKAVI [Suspect]
     Active Substance: RUXOLITINIB
     Dosage: 35 MG, (15MG QAM AND 20 MG QPM)
     Route: 048
  5. SYMBICORT [Concomitant]
     Active Substance: BUDESONIDE\FORMOTEROL FUMARATE DIHYDRATE
     Indication: PRODUCT USED FOR UNKNOWN INDICATION
     Dosage: 1 DF, QD (1 PUFF, DAILY)
     Route: 065
  6. JAKAVI [Suspect]
     Active Substance: RUXOLITINIB
     Indication: ESSENTIAL THROMBOCYTHAEMIA
     Dosage: 15 MG, BID
     Route: 048
  7. BABY ASPIRIN [Concomitant]
     Active Substance: ASPIRIN
     Indication: PRODUCT USED FOR UNKNOWN INDICATION
     Dosage: UNK UNK, QD
     Route: 065
  8. JAKAVI [Suspect]
     Active Substance: RUXOLITINIB
     Dosage: 15 MG, BID
     Route: 048
  9. JAKAVI [Suspect]
     Active Substance: RUXOLITINIB
     Dosage: 35 MG, (15MG QAM AND 20 MG QPM)
     Route: 048
     Dates: start: 20180409
  10. JAKAVI [Suspect]
     Active Substance: RUXOLITINIB
     Indication: MYELOFIBROSIS
     Dosage: 20 MG, BID
     Route: 048
     Dates: start: 20160413
  11. VITAMIN D [Concomitant]
     Active Substance: CHOLECALCIFEROL
     Indication: PRODUCT USED FOR UNKNOWN INDICATION
     Dosage: UNK UNK, QD
     Route: 065

REACTIONS (40)
  - Haemorrhage [Unknown]
  - Contusion [Unknown]
  - Hyponatraemia [Recovered/Resolved]
  - Burning sensation [Unknown]
  - Mood altered [Unknown]
  - Dysgeusia [Unknown]
  - Heat stroke [Recovered/Resolved]
  - Corneal neovascularisation [Unknown]
  - Electrolyte imbalance [Recovered/Resolved]
  - Decreased appetite [Unknown]
  - Diarrhoea [Unknown]
  - Peripheral swelling [Unknown]
  - Food craving [Unknown]
  - Diverticulitis [Unknown]
  - Haemoglobin decreased [Unknown]
  - Frustration tolerance decreased [Unknown]
  - Hypoaesthesia [Recovered/Resolved]
  - Swelling [Unknown]
  - Anxiety [Unknown]
  - Dizziness [Recovered/Resolved]
  - Feeling abnormal [Recovered/Resolved]
  - Asthenia [Unknown]
  - Muscular weakness [Unknown]
  - Weight increased [Not Recovered/Not Resolved]
  - Anaemia [Recovered/Resolved]
  - Muscle spasms [Recovered/Resolved]
  - Eye pain [Unknown]
  - Fatigue [Unknown]
  - Malaise [Recovered/Resolved]
  - Fluid retention [Recovered/Resolved]
  - Skin tightness [Unknown]
  - Bone pain [Unknown]
  - Headache [Unknown]
  - Nausea [Unknown]
  - Increased appetite [Unknown]
  - Platelet count increased [Recovering/Resolving]
  - Generalised oedema [Unknown]
  - Arthralgia [Unknown]
  - Pneumonia [Unknown]
  - Cerebral small vessel ischaemic disease [Unknown]
